FAERS Safety Report 18776330 (Version 1)
Quarter: 2021Q1

REPORT INFORMATION
  Report Type: Spontaneous
  Country: CN (occurrence: CN)
  Receive Date: 20210122
  Receipt Date: 20210122
  Transmission Date: 20210419
  Serious: Yes (Other)
  Sender: FDA-Public Use
  Company Number: CN-009507513-2101CHN006851

PATIENT
  Age: 49 Year
  Sex: Male

DRUGS (2)
  1. TIENAM [Suspect]
     Active Substance: CILASTATIN SODIUM\IMIPENEM
     Indication: INFECTION
  2. TIENAM [Suspect]
     Active Substance: CILASTATIN SODIUM\IMIPENEM
     Indication: AGRANULOCYTOSIS
     Dosage: 500 MILLIGRAM, THREE TIMES A DAY
     Route: 041
     Dates: start: 20201128, end: 20201128

REACTIONS (3)
  - Depressed level of consciousness [Recovered/Resolved]
  - Product use in unapproved indication [Unknown]
  - Muscle twitching [Recovered/Resolved]

NARRATIVE: CASE EVENT DATE: 20201128
